FAERS Safety Report 5494518-0 (Version None)
Quarter: 2007Q4

REPORT INFORMATION
  Report Type: 
  Country: None (occurrence: None)
  Receive Date: 20071022
  Receipt Date: 20071010
  Transmission Date: 20080405
  Serious: Yes (Hospitalization)
  Sender: FDA-Public Use
  Company Number: MEDI-0006053

PATIENT
  Sex: Male

DRUGS (4)
  1. SYNAGIS [Suspect]
     Indication: ANTIVIRAL PROPHYLAXIS
     Dosage: 15 MG/KG, INTRAMUSCULAR, INTRAMUSCULAR, INTRAMUSCULAR
     Route: 042
     Dates: start: 20061212, end: 20061212
  2. SYNAGIS [Suspect]
     Indication: ANTIVIRAL PROPHYLAXIS
     Dosage: 15 MG/KG, INTRAMUSCULAR, INTRAMUSCULAR, INTRAMUSCULAR
     Route: 042
     Dates: start: 20070109
  3. SYNAGIS [Suspect]
     Indication: ANTIVIRAL PROPHYLAXIS
     Dosage: 15 MG/KG, INTRAMUSCULAR, INTRAMUSCULAR, INTRAMUSCULAR
     Route: 042
     Dates: start: 20070206
  4. SYNAGIS [Suspect]
     Indication: ANTIVIRAL PROPHYLAXIS
     Dosage: 15 MG/KG, INTRAMUSCULAR, INTRAMUSCULAR, INTRAMUSCULAR
     Route: 042
     Dates: start: 20070316

REACTIONS (1)
  - BRONCHIOLITIS [None]
